FAERS Safety Report 9495449 (Version 1)
Quarter: 2013Q3

REPORT INFORMATION
  Report Type: Spontaneous
  Country: GB (occurrence: GB)
  Receive Date: 20130903
  Receipt Date: 20130903
  Transmission Date: 20140515
  Serious: Yes (Other)
  Sender: FDA-Public Use
  Company Number: GB-TEVA-429157ISR

PATIENT
  Age: 65 Year
  Sex: Female
  Weight: 57.35 kg

DRUGS (6)
  1. TRIMETHOPRIM [Suspect]
     Dates: start: 20130809
  2. AMLODIPINE [Concomitant]
     Dates: start: 20130422
  3. LANSOPRAZOLE [Concomitant]
     Dates: start: 20130422
  4. SIMVASTATIN [Concomitant]
     Dates: start: 20130422
  5. AMITRIPTYLINE HYDROCHLORIDE [Concomitant]
     Dates: start: 20130809
  6. NITROFURANTOIN [Concomitant]
     Dates: start: 20130809

REACTIONS (3)
  - Rash generalised [Recovering/Resolving]
  - Malaise [Unknown]
  - Diarrhoea [Unknown]
